FAERS Safety Report 17648679 (Version 1)
Quarter: 2020Q2

REPORT INFORMATION
  Report Type: Report from Study
  Country: CA (occurrence: CA)
  Receive Date: 20200408
  Receipt Date: 20200408
  Transmission Date: 20200713
  Serious: Yes (Other)
  Sender: FDA-Public Use
  Company Number: CA-JNJFOC-20200330729

PATIENT
  Sex: Female

DRUGS (2)
  1. STELARA [Suspect]
     Active Substance: USTEKINUMAB
     Route: 058
  2. STELARA [Suspect]
     Active Substance: USTEKINUMAB
     Indication: CROHN^S DISEASE
     Dosage: LAST DOSE GIVEN 14-FEB-2020
     Route: 058

REACTIONS (6)
  - Therapeutic response decreased [Unknown]
  - Crohn^s disease [Unknown]
  - Product use issue [Unknown]
  - Malaise [Unknown]
  - Herpes zoster [Unknown]
  - Off label use [Unknown]
